FAERS Safety Report 4620461-2 (Version None)
Quarter: 2005Q1

REPORT INFORMATION
  Report Type: 
  Country: None (occurrence: None)
  Receive Date: 20050324
  Receipt Date: 20050311
  Transmission Date: 20050727
  Serious: Yes (Life-Threatening, Hospitalization, Other)
  Sender: FDA-Public Use
  Company Number: HQWYE068311MAR05

PATIENT
  Age: 80 Year
  Sex: Female

DRUGS (8)
  1. CORDARONE [Suspect]
     Indication: ATRIAL TACHYCARDIA
     Dosage: 200 MG 1X PER 1 DAY ORAL
     Route: 048
  2. DIGOXIN [Suspect]
     Dosage: 0.125 MG 1X PER 1 DAY ORAL
     Route: 048
  3. ARIMIDEX [Concomitant]
  4. NOCTRAN 10 (ACEPROMAZINE/ACEPROMETAZINE/CLORAZEPATE DIPOTASSIUM) [Concomitant]
  5. COVERSYL (PERINDOPRIL) [Concomitant]
  6. LASILIX               (FUROSEMIDE) [Concomitant]
  7. TRAMADOL HCL [Concomitant]
  8. PREVISCAN                    (FLUINDIONE) [Concomitant]

REACTIONS (10)
  - BLOOD PRESSURE INCREASED [None]
  - BRADYCARDIA [None]
  - BUNDLE BRANCH BLOCK RIGHT [None]
  - ERYTHEMA [None]
  - FALL [None]
  - LOSS OF CONSCIOUSNESS [None]
  - MALAISE [None]
  - SYNCOPE [None]
  - TORSADE DE POINTES [None]
  - VENTRICULAR EXTRASYSTOLES [None]
